FAERS Safety Report 6262988-6 (Version None)
Quarter: 2009Q3

REPORT INFORMATION
  Report Type: 
  Country: None (occurrence: None)
  Receive Date: 20090710
  Receipt Date: 20080401
  Transmission Date: 20100115
  Serious: No
  Sender: FDA-Public Use
  Company Number: US-ASTRAZENECA-2006UW21268

PATIENT
  Age: 39 Year
  Sex: Male
  Weight: 138.8 kg

DRUGS (27)
  1. SEROQUEL [Suspect]
     Indication: INSOMNIA
     Dosage: 25-100 MG
     Route: 048
     Dates: start: 20050324, end: 20060701
  2. SEROQUEL [Suspect]
     Indication: DEPRESSION
     Dosage: 25-100 MG
     Route: 048
     Dates: start: 20050324, end: 20060701
  3. SEROQUEL [Suspect]
     Dosage: 10 MG TO 100 MG
     Route: 048
     Dates: start: 20050324
  4. SEROQUEL [Suspect]
     Dosage: 10 MG TO 100 MG
     Route: 048
     Dates: start: 20050324
  5. LEXAPRO [Concomitant]
  6. ATROVENT [Concomitant]
  7. ADVAIR HFA [Concomitant]
  8. ZOLOFT [Concomitant]
     Dosage: 100-200 MG
     Route: 048
  9. TRAZODONE HCL [Concomitant]
     Dosage: 25-160 MG
     Route: 048
  10. HYDROXYZINE PAMOATE [Concomitant]
     Indication: ANXIETY
     Dosage: 25-200 MG
     Route: 048
  11. NORTRIPTYLINE HCL [Concomitant]
     Dosage: 25-75 MG
     Route: 048
  12. HYDROCODONE BITARTRATE [Concomitant]
     Indication: PAIN
     Route: 048
  13. CAMPRAL [Concomitant]
     Route: 048
  14. PROVENTIL-HFA [Concomitant]
  15. IBUPROFEN [Concomitant]
     Route: 048
  16. POTASSIUM CHLORIDE [Concomitant]
  17. AMITRIPTYLINE HCL [Concomitant]
     Indication: SLEEP DISORDER
     Dosage: 25-50 MG
     Route: 048
  18. GEODON [Concomitant]
     Indication: PSYCHOTIC DISORDER
     Route: 048
  19. GLUCOPHAGE [Concomitant]
     Indication: TYPE 2 DIABETES MELLITUS
  20. ALDACTONE [Concomitant]
     Route: 048
  21. ZOCOR [Concomitant]
     Route: 048
  22. ASPIRIN [Concomitant]
     Dosage: 81-325 MG
     Route: 048
  23. THEOPHYLLINE [Concomitant]
     Route: 048
  24. CRESTOR [Concomitant]
     Indication: HYPERLIPIDAEMIA
  25. AMBIEN CR [Concomitant]
  26. LASIX [Concomitant]
     Dosage: 40-80 MG
  27. SPIRIVA [Concomitant]

REACTIONS (1)
  - DIABETES MELLITUS [None]
